FAERS Safety Report 24293904 (Version 1)
Quarter: 2024Q3

REPORT INFORMATION
  Report Type: Spontaneous
  Country: US (occurrence: None)
  Receive Date: 20240906
  Receipt Date: 20240906
  Transmission Date: 20241017
  Serious: No
  Sender: DOMPE FARMACEUTICI
  Company Number: US-FARMAPROD-202308-202403-0931

PATIENT
  Age: 55 Year
  Sex: Female

DRUGS (12)
  1. OXERVATE [Suspect]
     Active Substance: CENEGERMIN-BKBJ
     Indication: Neurotrophic keratopathy
     Route: 047
     Dates: start: 20240312
  2. OXERVATE [Suspect]
     Active Substance: CENEGERMIN-BKBJ
  3. COENZYME Q-10 [Concomitant]
  4. OMEGA 3 [Concomitant]
     Active Substance: CAPSAICIN
     Dosage: 684-1200MG
  5. HERBALS\TURMERIC [Concomitant]
     Active Substance: HERBALS\TURMERIC
  6. MIEBO [Concomitant]
     Active Substance: PERFLUOROHEXYLOCTANE
  7. SYSTANE HYDRATION PF [Concomitant]
  8. PREDNISOLONE-BROMFENAC [Concomitant]
  9. DRY EYE FORMULA [Concomitant]
     Dosage: 133-167 MG
  10. TRAZODONE HCL [Concomitant]
     Active Substance: TRAZODONE HYDROCHLORIDE
  11. VYVANSE [Concomitant]
     Active Substance: LISDEXAMFETAMINE DIMESYLATE
  12. COCONUT OIL [Concomitant]
     Active Substance: COCONUT OIL

REACTIONS (6)
  - Eye pain [Not Recovered/Not Resolved]
  - Palpitations [Recovered/Resolved]
  - Foreign body sensation in eyes [Not Recovered/Not Resolved]
  - Eye discharge [Not Recovered/Not Resolved]
  - Foreign body sensation in eyes [Unknown]
  - Dry eye [Unknown]

NARRATIVE: CASE EVENT DATE: 20240313
